FAERS Safety Report 5849806-2 (Version None)
Quarter: 2008Q3

REPORT INFORMATION
  Report Type: 
  Country: None (occurrence: None)
  Receive Date: 20080818
  Receipt Date: 20080818
  Transmission Date: 20090109
  Serious: Yes (Hospitalization, Other)
  Sender: FDA-Public Use
  Company Number: None

PATIENT
  Age: 48 Year
  Sex: Female
  Weight: 67.1324 kg

DRUGS (1)
  1. PAROXETINE HCL [Suspect]
     Indication: ANXIETY
     Dates: start: 20040901, end: 20080815

REACTIONS (7)
  - ALOPECIA [None]
  - DIZZINESS [None]
  - FALL [None]
  - MIGRAINE [None]
  - SINUS DISORDER [None]
  - SKIN EXFOLIATION [None]
  - THERAPEUTIC RESPONSE UNEXPECTED WITH DRUG SUBSTITUTION [None]
